FAERS Safety Report 19642757 (Version 1)
Quarter: 2021Q3

REPORT INFORMATION
  Report Type: Spontaneous
  Country: CA (occurrence: CA)
  Receive Date: 20210730
  Receipt Date: 20210730
  Transmission Date: 20211014
  Serious: Yes (Other)
  Sender: FDA-Public Use
  Company Number: CA-PFIZER INC-202100933755

PATIENT
  Age: 66 Year
  Sex: Female

DRUGS (3)
  1. METHOTREXATE SODIUM. [Suspect]
     Active Substance: METHOTREXATE SODIUM
     Dosage: 25MG, 15MG FOR OVER 65 YEARS) MINIMUM 8 WEEKS REQUIRED : 1 YEAR;
     Route: 051
  2. HYDROXYCHLOROQUINE [Concomitant]
     Active Substance: HYDROXYCHLOROQUINE
     Dosage: 200 MG 11 TABLETS PER WEEK
     Route: 048
  3. METHOTREXATE SODIUM. [Suspect]
     Active Substance: METHOTREXATE SODIUM
     Dosage: 12.5MG WEEKLY
     Route: 058

REACTIONS (3)
  - Liver function test increased [Unknown]
  - Drug-induced liver injury [Unknown]
  - Rheumatoid arthritis [Unknown]
